FAERS Safety Report 13636418 (Version 3)
Quarter: 2017Q2

REPORT INFORMATION
  Report Type: Report from Study
  Country: US (occurrence: US)
  Receive Date: 20170609
  Receipt Date: 20170629
  Transmission Date: 20170830
  Serious: Yes (Hospitalization, Other)
  Sender: FDA-Public Use
  Company Number: US-GILEAD-2017-0275511

PATIENT
  Age: 30 Year
  Sex: Female

DRUGS (4)
  1. VELETRI [Concomitant]
     Active Substance: EPOPROSTENOL
  2. AMBRISENTAN [Suspect]
     Active Substance: AMBRISENTAN
     Indication: PRODUCT USED FOR UNKNOWN INDICATION
     Dosage: 10 MG, QD
     Route: 065
     Dates: start: 20170519
  3. ADCIRCA [Concomitant]
     Active Substance: TADALAFIL
  4. XARELTO [Concomitant]
     Active Substance: RIVAROXABAN

REACTIONS (12)
  - Catheter site pruritus [Not Recovered/Not Resolved]
  - Catheter site erythema [Not Recovered/Not Resolved]
  - Nausea [Not Recovered/Not Resolved]
  - Vomiting [Recovered/Resolved]
  - Catheter site discharge [Not Recovered/Not Resolved]
  - Catheter site rash [Not Recovered/Not Resolved]
  - Device related infection [Unknown]
  - Dermatitis contact [Unknown]
  - Dyspnoea [Recovering/Resolving]
  - Headache [Unknown]
  - Pain in jaw [Not Recovered/Not Resolved]
  - Catheter site ulcer [Not Recovered/Not Resolved]
